FAERS Safety Report 25335383 (Version 1)
Quarter: 2025Q2

REPORT INFORMATION
  Report Type: Spontaneous
  Country: US (occurrence: US)
  Receive Date: 20250520
  Receipt Date: 20250520
  Transmission Date: 20250717
  Serious: No
  Sender: IPSEN BIOPHARMACEUTICALS, INC.
  Company Number: US-IPSEN Group, Research and Development-2025-11170

PATIENT
  Sex: Female
  Weight: 78.92 kg

DRUGS (12)
  1. BYLVAY [Suspect]
     Active Substance: ODEVIXIBAT
     Indication: Illness
     Dosage: EACH MORNING
     Route: 048
  2. NOVOLOG [Concomitant]
     Active Substance: INSULIN ASPART
  3. LANTUS SOLOSTAR [Concomitant]
     Active Substance: INSULIN GLARGINE
  4. AMOXICILLIN [Concomitant]
     Active Substance: AMOXICILLIN
  5. SERTRALINE HYDROCHLORIDE [Concomitant]
     Active Substance: SERTRALINE HYDROCHLORIDE
  6. HYDROXYZINE HYDROCHLORIDE [Concomitant]
     Active Substance: HYDROXYZINE HYDROCHLORIDE
  7. MAGNESIUM [Concomitant]
     Active Substance: MAGNESIUM
  8. PREDNISONE [Concomitant]
     Active Substance: PREDNISONE
  9. MIRENA [Concomitant]
     Active Substance: LEVONORGESTREL
  10. URSODIOL [Concomitant]
     Active Substance: URSODIOL
  11. CELLCEPT [Concomitant]
     Active Substance: MYCOPHENOLATE MOFETIL
  12. PROGRAF [Concomitant]
     Active Substance: TACROLIMUS

REACTIONS (3)
  - Pruritus [Unknown]
  - Skin burning sensation [Unknown]
  - Product dose omission issue [Unknown]
